FAERS Safety Report 8255478 (Version 2)
Quarter: 2012Q4

REPORT INFORMATION
  Report Type: Report from Study
  Country: DE (occurrence: DE)
  Receive Date: 20111118
  Receipt Date: 20121226
  Transmission Date: 20130627
  Serious: Yes (Hospitalization)
  Sender: FDA-Public Use
  Company Number: DE-MILLENNIUM PHARMACEUTICALS, INC.-2011-05675

PATIENT

DRUGS (8)
  1. VELCADE [Suspect]
     Indication: MULTIPLE MYELOMA
     Dosage: 1.3 mg/m2, Cyclic
     Route: 042
     Dates: start: 20111025, end: 20111028
  2. ADRIAMYCIN                         /00330901/ [Concomitant]
     Indication: MULTIPLE MYELOMA
     Dosage: 9 mg/m2, UNK
     Dates: start: 20111025, end: 20111028
  3. DEXAMETHASONE [Concomitant]
     Indication: MULTIPLE MYELOMA
     Dosage: 20 mg, UNK
     Dates: start: 20111025, end: 20111104
  4. ZOMETA [Concomitant]
     Indication: MULTIPLE MYELOMA
     Dosage: 4 mg, UNK
     Dates: start: 20111028, end: 20111028
  5. ACICLOVIR [Concomitant]
     Dosage: UNK
     Dates: start: 20111025, end: 20111104
  6. COTRIM FORTE EU RHO [Concomitant]
     Dosage: UNK
     Dates: start: 20111025, end: 20111104
  7. CLEXANE [Concomitant]
     Dosage: UNK
     Dates: start: 20111025, end: 20111104
  8. HYDROMORPHONE [Concomitant]
     Dosage: 12 mg, UNK
     Dates: start: 20111025, end: 20111104

REACTIONS (7)
  - Pain [Recovered/Resolved]
  - Hiccups [Recovered/Resolved]
  - Hypocalcaemia [Recovered/Resolved]
  - General physical health deterioration [Recovered/Resolved]
  - Gastritis [Recovered/Resolved]
  - Vomiting [Recovered/Resolved]
  - Decreased appetite [Recovered/Resolved]
